FAERS Safety Report 6275999-1 (Version None)
Quarter: 2009Q3

REPORT INFORMATION
  Report Type: 
  Country: None (occurrence: None)
  Receive Date: 20090720
  Receipt Date: 20090709
  Transmission Date: 20100115
  Serious: Yes (Other)
  Sender: FDA-Public Use
  Company Number: 2009VX001248

PATIENT
  Sex: Male

DRUGS (2)
  1. IONIL T PLUS SHAMPOO [Suspect]
     Indication: MALIGNANT MELANOMA
     Dosage: TOP
     Route: 061
  2. IONIL T PLUS SHAMPOO [Suspect]
     Indication: SQUAMOUS CELL CARCINOMA
     Dosage: TOP
     Route: 061

REACTIONS (2)
  - MALIGNANT MELANOMA [None]
  - SQUAMOUS CELL CARCINOMA [None]
